FAERS Safety Report 6084550-0 (Version None)
Quarter: 2009Q1

REPORT INFORMATION
  Report Type: 
  Country: None (occurrence: None)
  Receive Date: 20090219
  Receipt Date: 20090204
  Transmission Date: 20090719
  Serious: Yes (Hospitalization)
  Sender: FDA-Public Use
  Company Number: JP-ABBOTT-08P-087-0489830-00

PATIENT
  Age: 76 Year
  Sex: Male

DRUGS (7)
  1. LEUPROLIDE ACETATE [Suspect]
     Indication: PROSTATE CANCER
     Route: 058
     Dates: start: 20060817, end: 20080110
  2. LEUPROLIDE ACETATE [Suspect]
     Route: 058
     Dates: start: 20080626
  3. CASODEX [Concomitant]
     Indication: PROSTATE CANCER
     Route: 048
     Dates: start: 20060817
  4. DEPAS [Concomitant]
     Indication: DRUG USE FOR UNKNOWN INDICATION
     Route: 048
     Dates: start: 20030823
  5. POLLAKISU [Concomitant]
     Indication: URINARY INCONTINENCE
     Route: 048
     Dates: start: 20030823
  6. DAIKENTYUTO [Concomitant]
     Indication: ILEUS PARALYTIC
     Route: 048
     Dates: start: 20031224
  7. DAIKENTYUTO [Concomitant]
     Indication: POST PROCEDURAL COMPLICATION

REACTIONS (1)
  - PNEUMONIA [None]
